FAERS Safety Report 8167204-6 (Version None)
Quarter: 2012Q1

REPORT INFORMATION
  Report Type: 
  Country: None (occurrence: None)
  Receive Date: 20120221
  Receipt Date: 20120207
  Transmission Date: 20120608
  Serious: Yes (Other)
  Sender: FDA-Public Use
  Company Number: 2012P1004186

PATIENT
  Age: 49 Year
  Sex: Male
  Weight: 84 kg

DRUGS (7)
  1. ACETAMINOPHEN [Concomitant]
  2. FENTANYL [Concomitant]
  3. BUPIVACAINE HCL [Concomitant]
  4. DEXKETOPROFEN [Concomitant]
  5. MORPHINE [Suspect]
     Indication: PAIN
     Dosage: 3/250 MG/ML;X1;ED, 1 MG/ML;ED
  6. INHALED BRONCHODILATORS [Concomitant]
  7. METAMIZOLE [Concomitant]

REACTIONS (5)
  - PCO2 INCREASED [None]
  - HYPOTENSION [None]
  - ALTERED STATE OF CONSCIOUSNESS [None]
  - OXYGEN SATURATION DECREASED [None]
  - BLOOD PH DECREASED [None]
